FAERS Safety Report 5050805-1 (Version None)
Quarter: 2006Q3

REPORT INFORMATION
  Report Type: 
  Country: None (occurrence: None)
  Receive Date: 20060710
  Receipt Date: 20060623
  Transmission Date: 20061208
  Serious: Yes (Disabling)
  Sender: FDA-Public Use
  Company Number: GXKR2006TW03572

PATIENT
  Age: 57 Year
  Sex: Male

DRUGS (1)
  1. FAMOTIDINE [Suspect]
     Indication: GASTRIC ULCER
     Dosage: 20 MG, BID

REACTIONS (4)
  - BLINDNESS TRANSIENT [None]
  - RETINOPATHY [None]
  - VISION BLURRED [None]
  - VISUAL ACUITY REDUCED [None]
